FAERS Safety Report 14712177 (Version 1)
Quarter: 2018Q2

REPORT INFORMATION
  Report Type: Spontaneous
  Country: US (occurrence: US)
  Receive Date: 20180404
  Receipt Date: 20180404
  Transmission Date: 20180711
  Serious: No
  Sender: FDA-Public Use
  Company Number: US-SA-2017SA109489

PATIENT
  Age: 50 Year
  Sex: Male

DRUGS (1)
  1. ALLEGRA-D 24 HOUR [Suspect]
     Active Substance: FEXOFENADINE HYDROCHLORIDE\PSEUDOEPHEDRINE HYDROCHLORIDE
     Dosage: TAKEN FROM YEARS AND YEAR
     Route: 065

REACTIONS (5)
  - Dehydration [Unknown]
  - Condition aggravated [Unknown]
  - Sunburn [Unknown]
  - Photosensitivity reaction [Unknown]
  - Dyspnoea [Unknown]
